FAERS Safety Report 16694346 (Version 2)
Quarter: 2019Q3

REPORT INFORMATION
  Report Type: Not Available
  Country: US (occurrence: US)
  Receive Date: 20190812
  Receipt Date: 20190920
  Transmission Date: 20191004
  Serious: No
  Sender: FDA-Public Use
  Company Number: US-NEUROCRINE BIOSCIENCES INC.-2019NBI02165

PATIENT
  Sex: Female

DRUGS (7)
  1. AMLODIPINE BESYLATE. [Concomitant]
     Active Substance: AMLODIPINE BESYLATE
  2. DULOXETINE. [Concomitant]
     Active Substance: DULOXETINE
     Dosage: MORNING
     Route: 048
  3. TRAZODONE [Concomitant]
     Active Substance: TRAZODONE HYDROCHLORIDE
     Dosage: 3 TABLETS
     Route: 048
  4. BUPROPION. [Concomitant]
     Active Substance: BUPROPION
     Dosage: MORNING
     Route: 048
  5. METOPROLOL TARTRATE. [Concomitant]
     Active Substance: METOPROLOL TARTRATE
  6. LEVOTHYROXINE SODIUM. [Concomitant]
     Active Substance: LEVOTHYROXINE SODIUM
  7. INGREZZA [Suspect]
     Active Substance: VALBENAZINE
     Indication: TARDIVE DYSKINESIA
     Route: 048
     Dates: start: 20190831

REACTIONS (3)
  - Weight increased [Unknown]
  - Tardive dyskinesia [Unknown]
  - Therapeutic product effect incomplete [None]

NARRATIVE: CASE EVENT DATE: 2019
